FAERS Safety Report 12705034 (Version 2)
Quarter: 2016Q3

REPORT INFORMATION
  Report Type: Spontaneous
  Country: US (occurrence: US)
  Receive Date: 20160831
  Receipt Date: 20160927
  Transmission Date: 20161109
  Serious: Yes (Other)
  Sender: FDA-Public Use
  Company Number: US-ABBVIE-16P-163-1715062-00

PATIENT
  Sex: Male

DRUGS (2)
  1. RIBAVIRIN. [Suspect]
     Active Substance: RIBAVIRIN
     Indication: HEPATITIS C
     Route: 065
     Dates: start: 2002, end: 2003
  2. INTERFERON [Suspect]
     Active Substance: INTERFERON
     Indication: HEPATITIS C
     Route: 065
     Dates: start: 2002, end: 2003

REACTIONS (7)
  - Hepatic cirrhosis [Unknown]
  - Immunodeficiency [Unknown]
  - Weight decreased [Recovered/Resolved]
  - Feeling abnormal [Unknown]
  - Encephalitis [Unknown]
  - Procedural pain [Unknown]
  - Ascites [Unknown]
